FAERS Safety Report 6940590-8 (Version None)
Quarter: 2010Q3

REPORT INFORMATION
  Report Type: 
  Country: None (occurrence: None)
  Receive Date: 20100825
  Receipt Date: 20100818
  Transmission Date: 20110219
  Serious: Yes (Hospitalization, Other)
  Sender: FDA-Public Use
  Company Number: GB-BAYER-201025180GPV

PATIENT
  Age: 63 Year
  Sex: Female
  Weight: 85 kg

DRUGS (6)
  1. ASPIRIN [Suspect]
     Indication: CARDIOVASCULAR EVENT PROPHYLAXIS
     Route: 048
     Dates: start: 20090629, end: 20100510
  2. BLACKMORES FISH OIL [Concomitant]
     Indication: SUPPLEMENTATION THERAPY
     Dosage: 1 CAPSULE DAILY
     Route: 048
     Dates: start: 20090727, end: 20090820
  3. FOLIC ACID [Concomitant]
     Indication: VITAMIN B12 DEFICIENCY
     Route: 048
     Dates: start: 20100506, end: 20100608
  4. FOLIC ACID [Concomitant]
     Route: 048
     Dates: start: 20100612
  5. FERROUS SULFATE [Concomitant]
     Indication: IRON DEFICIENCY ANAEMIA
     Route: 048
     Dates: start: 20100506, end: 20100608
  6. FERROUS SULFATE [Concomitant]
     Route: 048
     Dates: start: 20100612

REACTIONS (1)
  - OESOPHAGEAL SQUAMOUS CELL CARCINOMA [None]
